FAERS Safety Report 7352157-0 (Version None)
Quarter: 2011Q1

REPORT INFORMATION
  Report Type: 
  Country: None (occurrence: None)
  Receive Date: 20110304
  Receipt Date: 20110217
  Transmission Date: 20110831
  Serious: Yes (Hospitalization)
  Sender: FDA-Public Use
  Company Number: 2011AT000023

PATIENT
  Age: 57 Year
  Sex: Female

DRUGS (1)
  1. PROTSTAVASIN (ALPROSTADIL) [Suspect]
     Indication: SKIN LESION
     Dosage: 20 UG;40 UG
     Dates: start: 20101229

REACTIONS (2)
  - OEDEMA PERIPHERAL [None]
  - BLOOD URINE PRESENT [None]
